FAERS Safety Report 21542213 (Version 3)
Quarter: 2023Q1

REPORT INFORMATION
  Report Type: Spontaneous
  Country: US (occurrence: US)
  Receive Date: 20221102
  Receipt Date: 20230202
  Transmission Date: 20230418
  Serious: No
  Sender: FDA-Public Use
  Company Number: US-PFIZER INC-PV202200094366

PATIENT
  Age: 58 Year
  Sex: Female
  Weight: 70.295 kg

DRUGS (1)
  1. IBRANCE [Suspect]
     Active Substance: PALBOCICLIB
     Indication: Breast cancer stage IV
     Dosage: 10 MG, 1X/DAY
     Dates: start: 2021

REACTIONS (2)
  - Neoplasm progression [Unknown]
  - Malaise [Unknown]
